FAERS Safety Report 5209036-4 (Version None)
Quarter: 2007Q1

REPORT INFORMATION
  Report Type: 
  Country: None (occurrence: None)
  Receive Date: 20070116
  Receipt Date: 20070104
  Transmission Date: 20070707
  Serious: Yes (Other)
  Sender: FDA-Public Use
  Company Number: US-MERCK-0208USA01716

PATIENT
  Age: 65 Year
  Sex: Female
  Weight: 97 kg

DRUGS (6)
  1. COZAAR [Suspect]
     Indication: HYPERTENSION
     Route: 048
     Dates: start: 19980101
  2. ESTRATAB [Concomitant]
     Route: 048
  3. MENEST [Concomitant]
     Route: 048
  4. ENULOSE [Concomitant]
     Route: 048
  5. LEVBID [Concomitant]
     Route: 048
  6. AMITRIPTYLINE [Concomitant]
     Route: 048

REACTIONS (3)
  - LICHEN PLANUS [None]
  - NAIL DISORDER [None]
  - PAIN [None]
